FAERS Safety Report 8790045 (Version 1)
Quarter: 2012Q4

REPORT INFORMATION
  Report Type: 
  Country: CA (occurrence: CA)
  Receive Date: 20120917
  Receipt Date: 20120917
  Transmission Date: 20130627
  Serious: Yes (Other)
  Sender: FDA-Public Use
  Company Number: CA-VERTEX PHARMACEUTICAL INC.-AE-2012-005696

PATIENT
  Age: 48 Year
  Sex: Male
  Weight: 89 kg

DRUGS (3)
  1. INCIVEK [Suspect]
     Indication: HEPATITIS C
     Dosage: 750 mg, tid
     Route: 048
     Dates: start: 20120412, end: 20120416
  2. PEGASYS [Suspect]
     Indication: HEPATITIS C
     Dates: start: 20120412
  3. RIBAVIRIN [Suspect]
     Indication: HEPATITIS C
     Dates: start: 20120412

REACTIONS (1)
  - Rash generalised [Recovered/Resolved]
